FAERS Safety Report 6883999-3 (Version None)
Quarter: 2010Q3

REPORT INFORMATION
  Report Type: 
  Country: None (occurrence: None)
  Receive Date: 20100729
  Receipt Date: 20100715
  Transmission Date: 20110219
  Serious: Yes (Hospitalization)
  Sender: FDA-Public Use
  Company Number: PHHY2010PA46299

PATIENT
  Age: 10 Year
  Sex: Male

DRUGS (3)
  1. TRILEPTAL [Suspect]
     Indication: CONVULSION
     Dosage: 300 MG, QD
     Route: 048
  2. TRILEPTAL [Suspect]
     Dosage: 1.5 DF, QD
     Route: 048
  3. TRILEPTAL [Suspect]
     Dosage: 5 MG, BID
     Route: 048

REACTIONS (4)
  - DRUG EFFECT DECREASED [None]
  - PARALYSIS [None]
  - UNRESPONSIVE TO STIMULI [None]
  - WEIGHT INCREASED [None]
